FAERS Safety Report 7047501 (Version 2)
Quarter: 2014Q4

REPORT INFORMATION
  Report Type: Report from Study
  Country: JP (occurrence: JP)
  Receive Date: 20090710
  Receipt Date: 20141211
  Transmission Date: 20150529
  Serious: Yes (Hospitalization)
  Sender: FDA-Public Use
  Company Number: PHHO2008JP04016

PATIENT
  Age: 45 Year
  Sex: Female
  Weight: 67 kg

DRUGS (8)
  1. LAXOBERON [Concomitant]
     Active Substance: SODIUM PICOSULFATE
     Indication: CONSTIPATION
     Dosage: UNK
  2. CLOZARIL [Suspect]
     Active Substance: CLOZAPINE
     Dosage: 600 MG DAILY DIVIDED INTO 3 DOSES
     Route: 048
     Dates: start: 20030318
  3. CLOZARIL [Suspect]
     Active Substance: CLOZAPINE
     Dosage: 600 MG DAILY DIVIDED INTO 4 DOSES DAILY
     Route: 048
     Dates: start: 20050426
  4. MYSLEE [Concomitant]
     Active Substance: ZOLPIDEM TARTRATE
     Indication: INSOMNIA
     Dosage: UNK
     Dates: start: 20021029
  5. MAGNESIUM OXIDE. [Concomitant]
     Active Substance: MAGNESIUM OXIDE
     Indication: CONSTIPATION
     Dosage: UNK
     Dates: start: 20080122
  6. WYPAX [Concomitant]
     Active Substance: LORAZEPAM
     Indication: SCHIZOPHRENIA
     Dosage: UNK
     Dates: start: 20080318, end: 20080324
  7. CLOZARIL [Suspect]
     Active Substance: CLOZAPINE
     Indication: SCHIZOPHRENIA
     Dosage: 12.5 MG, QD
     Route: 048
     Dates: start: 20011205
  8. EURODIN [Concomitant]
     Active Substance: ESTAZOLAM
     Indication: INSOMNIA
     Dosage: UNK
     Route: 048

REACTIONS (11)
  - Apathy [Not Recovered/Not Resolved]
  - Anxiety [Not Recovered/Not Resolved]
  - Decreased activity [Not Recovered/Not Resolved]
  - Poverty of thought content [Not Recovered/Not Resolved]
  - Schizophrenia [Not Recovered/Not Resolved]
  - Persecutory delusion [Recovered/Resolved]
  - Delusion of reference [Recovered/Resolved]
  - Compulsions [Recovered/Resolved]
  - Obsessive-compulsive disorder [Recovered/Resolved]
  - Flat affect [Not Recovered/Not Resolved]
  - Exposure to noise [Recovered/Resolved]

NARRATIVE: CASE EVENT DATE: 200802
